FAERS Safety Report 15516079 (Version 16)
Quarter: 2021Q1

REPORT INFORMATION
  Report Type: Spontaneous
  Country: US (occurrence: US)
  Receive Date: 20181017
  Receipt Date: 20210202
  Transmission Date: 20210419
  Serious: Yes (Other)
  Sender: FDA-Public Use
  Company Number: US-PFIZER INC-2018402022

PATIENT
  Age: 82 Year
  Sex: Female
  Weight: 73 kg

DRUGS (12)
  1. LYRICA [Suspect]
     Active Substance: PREGABALIN
     Indication: SPINAL DISORDER
     Dosage: 75 MG, THREE TIMES A DAY
     Route: 048
  2. LYRICA [Suspect]
     Active Substance: PREGABALIN
     Indication: NEUROPATHY PERIPHERAL
     Dosage: 600 MG
     Route: 048
  3. TOVIAZ [Concomitant]
     Active Substance: FESOTERODINE FUMARATE
     Indication: NEURALGIA
     Dosage: 8 MG, 1X/DAY (8MG, TABLET, BY MOUTH, ONCE DAILY NIGHTTIME)
     Route: 048
  4. VITAMIN C [Concomitant]
     Active Substance: ASCORBIC ACID
     Dosage: 500 MG, AFTER DINNER EVERY NIGHT
  5. TOVIAZ [Concomitant]
     Active Substance: FESOTERODINE FUMARATE
     Indication: BLADDER DISORDER
     Dosage: 5 MG, AT BEDTIME
  6. LYRICA [Suspect]
     Active Substance: PREGABALIN
     Indication: LIMB DISCOMFORT
     Dosage: 150 MG, TWICE A DAY
     Route: 048
     Dates: start: 2018
  7. LYRICA [Suspect]
     Active Substance: PREGABALIN
     Indication: PAIN
     Dosage: 75 MG, TWICE A DAY
     Route: 048
  8. PREMARIN [Concomitant]
     Active Substance: ESTROGENS, CONJUGATED
     Dosage: UNK
  9. LYRICA [Suspect]
     Active Substance: PREGABALIN
     Indication: PAIN IN EXTREMITY
     Dosage: 75 MG, TWICE A DAY
     Route: 048
  10. ARTHROTEC [Concomitant]
     Active Substance: DICLOFENAC SODIUM\MISOPROSTOL
     Dosage: UNK
  11. LYRICA [Suspect]
     Active Substance: PREGABALIN
     Indication: BACK DISORDER
     Dosage: 150 MG, TWICE A DAY
     Route: 048
     Dates: start: 20170514
  12. LYRICA [Suspect]
     Active Substance: PREGABALIN
     Indication: NEURALGIA

REACTIONS (10)
  - Paralysis [Unknown]
  - Impaired driving ability [Unknown]
  - Insomnia [Unknown]
  - Pollakiuria [Unknown]
  - Drug ineffective [Unknown]
  - Feeling abnormal [Unknown]
  - Product dispensing error [Unknown]
  - Onychoclasis [Not Recovered/Not Resolved]
  - Tinnitus [Unknown]
  - Nail growth abnormal [Not Recovered/Not Resolved]

NARRATIVE: CASE EVENT DATE: 20170514
